FAERS Safety Report 8328899-7 (Version None)
Quarter: 2012Q2

REPORT INFORMATION
  Report Type: 
  Country: None (occurrence: None)
  Receive Date: 20120502
  Receipt Date: 20120418
  Transmission Date: 20120825
  Serious: Yes (Hospitalization, Disabling)
  Sender: FDA-Public Use
  Company Number: CN-JNJFOC-20120413622

PATIENT
  Sex: Female
  Weight: 65 kg

DRUGS (1)
  1. ITRACONAZOLE [Suspect]
     Indication: DERMATOPHYTOSIS
     Route: 048
     Dates: start: 20110908, end: 20110911

REACTIONS (7)
  - LIVER FUNCTION TEST ABNORMAL [None]
  - MYALGIA [None]
  - HEADACHE [None]
  - LYMPHADENOPATHY [None]
  - HEPATIC PAIN [None]
  - MALAISE [None]
  - DECREASED APPETITE [None]
